FAERS Safety Report 5051372-9 (Version None)
Quarter: 2006Q2

REPORT INFORMATION
  Report Type: 
  Country: None (occurrence: None)
  Receive Date: 20060614
  Receipt Date: 20060504
  Transmission Date: 20061013
  Serious: Yes (Other)
  Sender: FDA-Public Use
  Company Number: 447010

PATIENT
  Age: 50 Year
  Sex: Female
  Weight: 61.2 kg

DRUGS (1)
  1. BONIVA [Suspect]
     Indication: OSTEOPOROSIS
     Dosage: 150 MG  1 PER MONTH  ORAL
     Route: 048
     Dates: start: 20051115

REACTIONS (7)
  - DYSPHAGIA [None]
  - OESOPHAGEAL ULCER [None]
  - PAIN IN EXTREMITY [None]
  - PAIN IN JAW [None]
  - RHINORRHOEA [None]
  - TOOTHACHE [None]
  - URINE ODOUR ABNORMAL [None]
